FAERS Safety Report 10269188 (Version 1)
Quarter: 2014Q2

REPORT INFORMATION
  Report Type: Spontaneous
  Country: US (occurrence: US)
  Receive Date: 20140630
  Receipt Date: 20140630
  Transmission Date: 20141212
  Serious: No
  Sender: FDA-Public Use
  Company Number: -SAAVPROD-HECT-1000208

PATIENT
  Age: 48 Year
  Sex: Male

DRUGS (1)
  1. DOXERCALCIFEROL [Suspect]
     Indication: HYPERPARATHYROIDISM SECONDARY
     Dosage: 6 MCG, QD
     Route: 065
     Dates: end: 201304

REACTIONS (1)
  - Blood phosphorus increased [Not Recovered/Not Resolved]
